FAERS Safety Report 10751084 (Version 2)
Quarter: 2015Q1

REPORT INFORMATION
  Report Type: Spontaneous
  Country: JP (occurrence: JP)
  Receive Date: 20150130
  Receipt Date: 20150206
  Transmission Date: 20150721
  Serious: Yes (Hospitalization)
  Sender: FDA-Public Use
  Company Number: JP-NOVOPROD-436190

PATIENT
  Age: 81 Year
  Sex: Female
  Weight: 50.3 kg

DRUGS (6)
  1. SEIBULE [Concomitant]
     Active Substance: MIGLITOL
     Indication: TYPE 2 DIABETES MELLITUS
     Dosage: 150 MG
     Route: 048
     Dates: start: 20140228
  2. AIROCOOL [Concomitant]
     Indication: CARDIAC FAILURE CHRONIC
     Dosage: 40 MG
     Route: 048
     Dates: start: 20100922
  3. SIGMART [Concomitant]
     Active Substance: NICORANDIL
     Indication: CARDIAC FAILURE CHRONIC
     Dosage: 10 MG
     Route: 048
     Dates: start: 20100922
  4. BAYASPIRIN [Concomitant]
     Active Substance: ASPIRIN
     Indication: CARDIAC FAILURE CHRONIC
     Dosage: 100 MG
     Route: 048
     Dates: start: 20100922
  5. VICTOZA [Suspect]
     Active Substance: LIRAGLUTIDE
     Indication: TYPE 2 DIABETES MELLITUS
     Dosage: 0.3 MG, QD
     Route: 058
     Dates: start: 20140314, end: 20140404
  6. ARTIST [Concomitant]
     Active Substance: CARVEDILOL
     Indication: CARDIAC FAILURE CHRONIC
     Dosage: 5 MG
     Route: 048
     Dates: start: 20100922

REACTIONS (1)
  - Decreased appetite [Recovering/Resolving]

NARRATIVE: CASE EVENT DATE: 20140320
